FAERS Safety Report 14944795 (Version 7)
Quarter: 2020Q4

REPORT INFORMATION
  Report Type: Spontaneous
  Country: JP (occurrence: JP)
  Receive Date: 20180529
  Receipt Date: 20201013
  Transmission Date: 20210113
  Serious: Yes (Hospitalization, Other)
  Sender: FDA-Public Use
  Company Number: JP-BRISTOL-MYERS SQUIBB COMPANY-BMS-2016-106654

PATIENT
  Age: 70 Year
  Sex: Male
  Weight: 60 kg

DRUGS (31)
  1. OPDIVO [Suspect]
     Active Substance: NIVOLUMAB
     Dosage: 3 MG/KG, UNK
     Route: 041
     Dates: start: 20170404
  2. AMARYL [Concomitant]
     Active Substance: GLIMEPIRIDE
     Indication: DIABETES MELLITUS
     Dosage: 1 MILLIGRAM, Q12H
     Route: 048
     Dates: start: 20151115
  3. TRAMAL [Concomitant]
     Active Substance: TRAMADOL
     Indication: SPINAL OSTEOARTHRITIS
     Dosage: 75 MILLIGRAM, Q6H
     Route: 048
     Dates: start: 20160405
  4. OPDIVO [Suspect]
     Active Substance: NIVOLUMAB
     Indication: NON-SMALL CELL LUNG CANCER RECURRENT
     Dosage: 3 MG/KG, UNK
     Route: 041
     Dates: start: 20160916
  5. OPDIVO [Suspect]
     Active Substance: NIVOLUMAB
     Dosage: 3 MG/KG, UNK
     Route: 041
     Dates: start: 20170105
  6. OPDIVO [Suspect]
     Active Substance: NIVOLUMAB
     Dosage: 3 MG/KG, UNK
     Route: 041
     Dates: start: 20170302
  7. ATORVASTATIN [Concomitant]
     Active Substance: ATORVASTATIN
     Indication: HYPERLIPIDAEMIA
     Dosage: 10 MILLIGRAM, EVERYDAY
     Route: 048
     Dates: start: 20151115
  8. OPDIVO [Suspect]
     Active Substance: NIVOLUMAB
     Dosage: 3 MG/KG, UNK
     Route: 041
     Dates: start: 20161028
  9. OPDIVO [Suspect]
     Active Substance: NIVOLUMAB
     Dosage: 3 MG/KG, UNK
     Route: 041
     Dates: start: 20161221
  10. OPDIVO [Suspect]
     Active Substance: NIVOLUMAB
     Dosage: 3 MG/KG, UNK
     Route: 041
     Dates: start: 20170316
  11. URIEF [Concomitant]
     Active Substance: SILODOSIN
     Indication: HYPERURICAEMIA
     Dosage: 4 MILLIGRAM, Q12H
     Route: 048
     Dates: start: 20151115
  12. VOGLIBOSE [Concomitant]
     Active Substance: VOGLIBOSE
     Indication: DIABETES MELLITUS
     Dosage: 0.3 MILLIGRAM
     Route: 048
     Dates: start: 20151115
  13. LENDORMIN [Concomitant]
     Active Substance: BROTIZOLAM
     Indication: INSOMNIA
     Dosage: EVERYDAY
     Route: 048
     Dates: start: 20160405
  14. OPDIVO [Suspect]
     Active Substance: NIVOLUMAB
     Dosage: 3 MG/KG, UNK
     Route: 041
     Dates: start: 20170119
  15. OPDIVO [Suspect]
     Active Substance: NIVOLUMAB
     Dosage: 3 MG/KG, UNK
     Route: 041
     Dates: start: 20170202
  16. OPDIVO [Suspect]
     Active Substance: NIVOLUMAB
     Dosage: 3 MG/KG, UNK
     Route: 041
     Dates: start: 20170418
  17. ARASENA A [Suspect]
     Active Substance: VIDARABINE
     Indication: DISSEMINATED VARICELLA ZOSTER VIRUS INFECTION
     Dosage: 300 MILLIGRAM, QD
     Route: 041
     Dates: start: 20180220, end: 20180224
  18. MAGNESIUM OXIDE. [Concomitant]
     Active Substance: MAGNESIUM OXIDE
     Indication: GASTRITIS
     Dosage: 660 MILLIGRAM, Q8H
     Route: 048
     Dates: start: 20160405
  19. OPDIVO [Suspect]
     Active Substance: NIVOLUMAB
     Dosage: 3 MG/KG, UNK
     Route: 041
     Dates: start: 20161014
  20. OPDIVO [Suspect]
     Active Substance: NIVOLUMAB
     Dosage: 3 MG/KG, UNK
     Route: 041
     Dates: start: 20161116
  21. OPDIVO [Suspect]
     Active Substance: NIVOLUMAB
     Dosage: 170 UNK
     Route: 041
     Dates: start: 20180406, end: 20190509
  22. TRAZENTA [Concomitant]
     Active Substance: LINAGLIPTIN
     Indication: DIABETES MELLITUS
     Dosage: 5 MILLIGRAM, EVERYDAY
     Route: 048
     Dates: start: 20151115
  23. OPDIVO [Suspect]
     Active Substance: NIVOLUMAB
     Dosage: 3 MG/KG, UNK
     Route: 041
     Dates: start: 20161207
  24. FEBURIC [Concomitant]
     Active Substance: FEBUXOSTAT
     Indication: HYPERURICAEMIA
     Dosage: 20 MILLIGRAM, EVERYDAY
     Route: 048
     Dates: start: 20151115
  25. NEUROTROPIN [RABBIT VACCINIA EXTRACT] [Concomitant]
     Active Substance: ORYCTOLAGUS CUNICULUS SKIN
     Indication: SPINAL OSTEOARTHRITIS
     Dosage: 2 DOSAGE FORM, Q12H
     Route: 048
     Dates: start: 20151115
  26. OPDIVO [Suspect]
     Active Substance: NIVOLUMAB
     Dosage: 3 MG/KG, UNK
     Route: 041
     Dates: start: 20160930
  27. REBAMIPIDE [Concomitant]
     Active Substance: REBAMIPIDE
     Indication: GASTRITIS
     Dosage: 100 MILLIGRAM, Q8H
     Route: 048
     Dates: start: 20151115
  28. OPDIVO [Suspect]
     Active Substance: NIVOLUMAB
     Dosage: 3 MG/KG, UNK
     Route: 041
     Dates: start: 20170216
  29. OPDIVO [Suspect]
     Active Substance: NIVOLUMAB
     Dosage: 3 MG/KG, UNK
     Route: 041
     Dates: start: 20170502
  30. NEXIUM [Concomitant]
     Active Substance: ESOMEPRAZOLE MAGNESIUM
     Indication: GASTRITIS
     Dosage: 20 MILLIGRAM
     Route: 048
     Dates: start: 20151115
  31. LOXOPROFEN [Concomitant]
     Active Substance: LOXOPROFEN
     Indication: SPINAL OSTEOARTHRITIS
     Dosage: 60 MILLIGRAM, Q8H
     Route: 048
     Dates: start: 20151115

REACTIONS (4)
  - Disseminated varicella zoster virus infection [Recovered/Resolved]
  - Hypothyroidism [Recovered/Resolved]
  - White blood cell count decreased [Unknown]
  - CD4 lymphocytes decreased [Recovered/Resolved]

NARRATIVE: CASE EVENT DATE: 20170313
